FAERS Safety Report 10222161 (Version 2)
Quarter: 2014Q2

REPORT INFORMATION
  Report Type: Spontaneous
  Country: AR (occurrence: AR)
  Receive Date: 20140606
  Receipt Date: 20140606
  Transmission Date: 20141212
  Serious: Yes (Other)
  Sender: FDA-Public Use
  Company Number: AR-BIOMARINAP-AR-2014-103064

PATIENT
  Age: 4 Year
  Sex: Male

DRUGS (4)
  1. NAGLAZYME [Suspect]
     Indication: MUCOPOLYSACCHARIDOSIS VI
     Dosage: 15 MG, QW
     Route: 041
     Dates: start: 20130925
  2. SALINE                             /00075401/ [Concomitant]
     Indication: PREMEDICATION
  3. BENADRYL                           /00000402/ [Concomitant]
     Indication: PREMEDICATION
     Dosage: 1.5 MG/KG, UNK
  4. HYDROCORTISONE [Concomitant]
     Indication: PRODUCT USED FOR UNKNOWN INDICATION
     Dosage: 10 MG/KG, UNK
     Route: 041

REACTIONS (8)
  - Infusion related reaction [Recovered/Resolved]
  - Tremor [Unknown]
  - Skin discolouration [Unknown]
  - Hypotension [Unknown]
  - Cyanosis [Unknown]
  - Pyrexia [Unknown]
  - Bronchospasm [Unknown]
  - Tachycardia [Unknown]
